FAERS Safety Report 14838779 (Version 1)
Quarter: 2018Q2

REPORT INFORMATION
  Report Type: Spontaneous
  Country: CA (occurrence: CA)
  Receive Date: 20180502
  Receipt Date: 20180502
  Transmission Date: 20180711
  Serious: Yes (Other)
  Sender: FDA-Public Use
  Company Number: CA-PFIZER INC-2018032173

PATIENT
  Age: 56 Year
  Sex: Male
  Weight: 98.41 kg

DRUGS (4)
  1. PLAQUENIL [Concomitant]
     Active Substance: HYDROXYCHLOROQUINE SULFATE
     Indication: RHEUMATOID ARTHRITIS
     Dosage: UNK
     Dates: start: 2011
  2. RHEUMATREX [Concomitant]
     Active Substance: METHOTREXATE SODIUM
     Dosage: UNK
     Dates: start: 2012, end: 201706
  3. METHOTREXATE SODIUM. [Suspect]
     Active Substance: METHOTREXATE SODIUM
     Indication: RHEUMATOID ARTHRITIS
     Dosage: 25 MG, WEEKLY
     Route: 058
     Dates: start: 2012, end: 201706
  4. SULFASALAZINE. [Concomitant]
     Active Substance: SULFASALAZINE
     Indication: RHEUMATOID ARTHRITIS
     Dosage: UNK
     Dates: start: 2011

REACTIONS (16)
  - Anti-cyclic citrullinated peptide antibody positive [Unknown]
  - Joint space narrowing [Unknown]
  - Blood triglycerides abnormal [Unknown]
  - Injection site pain [Unknown]
  - Nausea [Unknown]
  - Haemoglobin decreased [Unknown]
  - Exostosis [Unknown]
  - Haematocrit decreased [Unknown]
  - Haematuria [Not Recovered/Not Resolved]
  - Multiple sclerosis [Unknown]
  - Foot deformity [Unknown]
  - Osteoarthritis [Unknown]
  - Red blood cell sedimentation rate increased [Unknown]
  - Blood uric acid increased [Unknown]
  - Red cell distribution width increased [Unknown]
  - Blood parathyroid hormone increased [Unknown]
